FAERS Safety Report 12460569 (Version 1)
Quarter: 2016Q2

REPORT INFORMATION
  Report Type: Spontaneous
  Country: IT (occurrence: IT)
  Receive Date: 20160613
  Receipt Date: 20160613
  Transmission Date: 20160815
  Serious: Yes (Hospitalization)
  Sender: FDA-Public Use
  Company Number: IT-SA-2016SA109686

PATIENT
  Age: 80 Year
  Sex: Female

DRUGS (11)
  1. ATORVASTATIN [Concomitant]
     Active Substance: ATORVASTATIN
  2. DERMATRANS [Concomitant]
  3. MIRTAZAPINE. [Concomitant]
     Active Substance: MIRTAZAPINE
  4. LASIX [Concomitant]
     Active Substance: FUROSEMIDE
     Route: 048
  5. LANSOX [Concomitant]
     Active Substance: LANSOPRAZOLE
  6. ZYLORIC [Concomitant]
     Active Substance: ALLOPURINOL
  7. CONGESCOR [Concomitant]
     Active Substance: BISOPROLOL
  8. KEPPRA [Concomitant]
     Active Substance: LEVETIRACETAM
  9. TACHIPIRINA [Concomitant]
     Active Substance: ACETAMINOPHEN
  10. CLEXANE [Suspect]
     Active Substance: ENOXAPARIN SODIUM
     Indication: ANTICOAGULANT THERAPY
     Route: 058
     Dates: start: 20151201, end: 20151205
  11. PLAVIX [Suspect]
     Active Substance: CLOPIDOGREL BISULFATE
     Indication: CEREBROVASCULAR ACCIDENT
     Route: 048
     Dates: start: 20151124, end: 20151205

REACTIONS (4)
  - Hemiplegia [Unknown]
  - Haematoma [Unknown]
  - Atrial fibrillation [Unknown]
  - Stroke in evolution [Unknown]

NARRATIVE: CASE EVENT DATE: 20151205
